FAERS Safety Report 4477559-1 (Version None)
Quarter: 2004Q4

REPORT INFORMATION
  Report Type: 
  Country: None (occurrence: None)
  Receive Date: 20041012
  Receipt Date: 20040927
  Transmission Date: 20050328
  Serious: Yes (Death)
  Sender: FDA-Public Use
  Company Number: 2004070936

PATIENT
  Age: 20 Year
  Sex: 0

DRUGS (4)
  1. SERTRALINE HYDROCHLORIDE [Suspect]
     Indication: ILL-DEFINED DISORDER
  2. METHADONE HCL [Suspect]
     Indication: ILL-DEFINED DISORDER
  3. GABAPENTIN [Suspect]
     Indication: ILL-DEFINED DISORDER
  4. ALL OTHER THERAPEUTIC PRODUCTS (ALLL OTHER THERAPEUTIC PRODUCTS) [Concomitant]
     Indication: ILL-DEFINED DISORDER

REACTIONS (1)
  - DRUG ABUSER [None]
